FAERS Safety Report 8199051-3 (Version None)
Quarter: 2012Q1

REPORT INFORMATION
  Report Type: 
  Country: None (occurrence: None)
  Receive Date: 20120309
  Receipt Date: 20120301
  Transmission Date: 20120608
  Serious: Yes (Other)
  Sender: FDA-Public Use
  Company Number: FR-GLAXOSMITHKLINE-B0778616A

PATIENT
  Sex: Male
  Weight: 92 kg

DRUGS (3)
  1. ARIXTRA [Suspect]
     Indication: THROMBOSIS PROPHYLAXIS
     Dosage: 2.5MG SINGLE DOSE
     Route: 058
     Dates: start: 20120122, end: 20120122
  2. MIZOLLEN [Concomitant]
     Indication: NASOPHARYNGITIS
     Dates: start: 20110101
  3. DESLORATADINE [Concomitant]
     Indication: NASOPHARYNGITIS
     Dates: start: 20110101

REACTIONS (1)
  - PALATAL OEDEMA [None]
